FAERS Safety Report 14698898 (Version 2)
Quarter: 2018Q3

REPORT INFORMATION
  Report Type: Spontaneous
  Country: DE (occurrence: DE)
  Receive Date: 20180330
  Receipt Date: 20180702
  Transmission Date: 20181010
  Serious: Yes (Other)
  Sender: FDA-Public Use
  Company Number: DE-WEST-WARD PHARMACEUTICALS CORP.-DE-H14001-18-02512

PATIENT
  Sex: Male

DRUGS (4)
  1. CIPROFLOXACIN. [Suspect]
     Active Substance: CIPROFLOXACIN
     Indication: URINARY TRACT OPERATION
     Route: 065
     Dates: start: 201405
  2. CIPROHEXAL (CIPROFLOXACIN) [Suspect]
     Active Substance: CIPROFLOXACIN
     Indication: PROSTATITIS
     Route: 065
     Dates: start: 201610
  3. METRONIDAZOL [Concomitant]
     Active Substance: METRONIDAZOLE
     Indication: PRODUCT USED FOR UNKNOWN INDICATION
     Route: 065
     Dates: start: 2016, end: 2016
  4. CIPROHEXAL (CIPROFLOXACIN) [Suspect]
     Active Substance: CIPROFLOXACIN
     Indication: PROSTATITIS ESCHERICHIA COLI
     Route: 065
     Dates: start: 2015

REACTIONS (35)
  - Tendon pain [Unknown]
  - Tachycardia [Not Recovered/Not Resolved]
  - Headache [Not Recovered/Not Resolved]
  - Immune system disorder [Not Recovered/Not Resolved]
  - Dysphagia [Unknown]
  - Pallor [Unknown]
  - Back pain [Unknown]
  - Laryngeal disorder [Unknown]
  - Disturbance in attention [Not Recovered/Not Resolved]
  - Paraesthesia [Unknown]
  - Food allergy [Unknown]
  - Sleep disorder [Not Recovered/Not Resolved]
  - Fear [Not Recovered/Not Resolved]
  - Panic disorder [Not Recovered/Not Resolved]
  - Arthropathy [Not Recovered/Not Resolved]
  - Asthenia [Not Recovered/Not Resolved]
  - Unevaluable event [Unknown]
  - Arthralgia [Not Recovered/Not Resolved]
  - Pain in extremity [Unknown]
  - Nail disorder [Unknown]
  - Diarrhoea [Recovered/Resolved]
  - Peripheral vascular disorder [Not Recovered/Not Resolved]
  - Connective tissue disorder [Unknown]
  - Dry mouth [Unknown]
  - Muscular weakness [Unknown]
  - Gastric disorder [Not Recovered/Not Resolved]
  - Spinal pain [Unknown]
  - Hyperhidrosis [Unknown]
  - Skin disorder [Unknown]
  - Somnolence [Not Recovered/Not Resolved]
  - Suicidal ideation [Unknown]
  - Depression [Unknown]
  - Pruritus [Not Recovered/Not Resolved]
  - Neuralgia [Not Recovered/Not Resolved]
  - Malaise [Not Recovered/Not Resolved]

NARRATIVE: CASE EVENT DATE: 2014
